FAERS Safety Report 7846696-3 (Version None)
Quarter: 2011Q4

REPORT INFORMATION
  Report Type: 
  Country: None (occurrence: None)
  Receive Date: 20111025
  Receipt Date: 20111021
  Transmission Date: 20120403
  Serious: Yes (Death, Hospitalization)
  Sender: FDA-Public Use
  Company Number: ES-ASTRAZENECA-2011SE63590

PATIENT
  Age: 71 Year
  Sex: Male

DRUGS (3)
  1. CYMBALTA [Concomitant]
  2. CASODEX [Suspect]
     Indication: PROSTATE CANCER STAGE IV
     Route: 048
     Dates: start: 20110710, end: 20111010
  3. ELIGARD [Concomitant]
     Indication: PROSTATE CANCER STAGE IV
     Dosage: 45 MILLIGRAMS, EVERY SIX MONTHS
     Route: 058
     Dates: start: 20110701, end: 20110701

REACTIONS (2)
  - TRANSAMINASES INCREASED [None]
  - ACUTE HEPATIC FAILURE [None]
